FAERS Safety Report 19199256 (Version 1)
Quarter: 2021Q2

REPORT INFORMATION
  Report Type: Spontaneous
  Country: CR (occurrence: CR)
  Receive Date: 20210430
  Receipt Date: 20210430
  Transmission Date: 20210717
  Serious: Yes (Other)
  Sender: FDA-Public Use
  Company Number: CR-ORGANON-O2104CRI002246

PATIENT
  Age: 59 Year
  Sex: Female
  Weight: 81.65 kg

DRUGS (4)
  1. AVANT [HALOPERIDOL] [Concomitant]
     Dosage: UNK
  2. LEVOTHYROXINE. [Concomitant]
     Active Substance: LEVOTHYROXINE
     Indication: HYPOTHYROIDISM
     Dosage: UNK
  3. METFORMIN [Concomitant]
     Active Substance: METFORMIN HYDROCHLORIDE
     Indication: BLOOD INSULIN ABNORMAL
     Dosage: UNK
  4. EZETIMIBE (+) SIMVASTATIN [Suspect]
     Active Substance: EZETIMIBE\SIMVASTATIN
     Indication: PANCREATIC DISORDER
     Dosage: 10/20 MG , 1 TABLET ONCE A DAY.
     Route: 048

REACTIONS (9)
  - Cholecystectomy [Unknown]
  - Peritonitis [Unknown]
  - Appendicectomy [Unknown]
  - Product use in unapproved indication [Unknown]
  - Premature menopause [Unknown]
  - Splenectomy [Unknown]
  - Endometriosis [Unknown]
  - Surgery [Unknown]
  - Hypothyroidism [Unknown]
